FAERS Safety Report 21439546 (Version 1)
Quarter: 2022Q4

REPORT INFORMATION
  Report Type: Spontaneous
  Country: FR (occurrence: FR)
  Receive Date: 20221011
  Receipt Date: 20221011
  Transmission Date: 20230112
  Serious: Yes (Hospitalization)
  Sender: FDA-Public Use
  Company Number: None

PATIENT
  Age: 55 Year
  Sex: Male
  Weight: 56 kg

DRUGS (5)
  1. ACYCLOVIR [Suspect]
     Active Substance: ACYCLOVIR
     Indication: Meningoencephalitis viral
     Route: 042
     Dates: start: 20220825, end: 20220916
  2. KEPPRA [Suspect]
     Active Substance: LEVETIRACETAM
     Indication: Generalised tonic-clonic seizure
     Dosage: 500MG TWICE A DAY
     Route: 042
     Dates: start: 20220829, end: 20220908
  3. KEPPRA [Suspect]
     Active Substance: LEVETIRACETAM
     Dosage: 1000MG TWICE A DAY
     Route: 042
     Dates: start: 20220825, end: 20220829
  4. KEPPRA [Suspect]
     Active Substance: LEVETIRACETAM
     Dosage: 250MG PER DAY
     Route: 042
     Dates: start: 20220920, end: 20220922
  5. KEPPRA [Suspect]
     Active Substance: LEVETIRACETAM
     Dosage: 500MG PER DAY
     Route: 042
     Dates: start: 20220908, end: 20220917

REACTIONS (1)
  - Encephalopathy [Not Recovered/Not Resolved]

NARRATIVE: CASE EVENT DATE: 20220825
